FAERS Safety Report 21741995 (Version 1)
Quarter: 2022Q4

REPORT INFORMATION
  Report Type: Spontaneous
  Country: US (occurrence: US)
  Receive Date: 20221216
  Receipt Date: 20221216
  Transmission Date: 20230113
  Serious: No
  Sender: FDA-Public Use
  Company Number: US-BIOGEN-2022BI01175127

PATIENT
  Sex: Male

DRUGS (4)
  1. VUMERITY [Suspect]
     Active Substance: DIROXIMEL FUMARATE
     Indication: Multiple sclerosis
     Route: 050
  2. VUMERITY [Suspect]
     Active Substance: DIROXIMEL FUMARATE
     Dosage: ONE CAPSULE TWICE A DAY FOR TWO WEEKS
     Route: 050
  3. VUMERITY [Suspect]
     Active Substance: DIROXIMEL FUMARATE
     Dosage: FULL DOSE OF TWO CAPSULES TWICE A DAY
     Route: 050
  4. COLLAGEN [Concomitant]
     Active Substance: COLLAGEN
     Indication: Product used for unknown indication
     Route: 050

REACTIONS (5)
  - Product dose omission in error [Unknown]
  - Underdose [Recovered/Resolved]
  - Faeces soft [Unknown]
  - Fluid intake restriction [Unknown]
  - Headache [Unknown]

NARRATIVE: CASE EVENT DATE: 20220101
